FAERS Safety Report 9570959 (Version 3)
Quarter: 2013Q4

REPORT INFORMATION
  Report Type: Spontaneous
  Country: US (occurrence: US)
  Receive Date: 20131001
  Receipt Date: 20131111
  Transmission Date: 20140711
  Serious: No
  Sender: FDA-Public Use
  Company Number: US-JNJFOC-20130915815

PATIENT
  Sex: Female
  Weight: 53.52 kg

DRUGS (8)
  1. DURAGESIC [Suspect]
     Indication: BACK PAIN
     Route: 062
  2. DURAGESIC [Suspect]
     Indication: BACK PAIN
     Route: 062
  3. OXYCODONE [Concomitant]
     Indication: BACK PAIN
     Dosage: 3 OR 4 TIMES AS NEEDED
     Route: 048
     Dates: start: 2013
  4. AMBIEN [Concomitant]
     Indication: SLEEP DISORDER THERAPY
     Dosage: AT NIGHT
     Route: 048
     Dates: start: 2013
  5. LYRICA [Concomitant]
     Indication: MUSCLE SPASMS
     Dosage: 2-3 TIMES A DAY
     Route: 048
     Dates: start: 2012
  6. LYRICA [Concomitant]
     Indication: PAIN
     Dosage: 2-3 TIMES A DAY
     Route: 048
     Dates: start: 2012
  7. LITHIUM [Concomitant]
     Indication: BIPOLAR DISORDER
     Route: 048
  8. OXYGEN [Concomitant]
     Indication: PRODUCT USED FOR UNKNOWN INDICATION
     Route: 065

REACTIONS (6)
  - Wrong technique in drug usage process [Unknown]
  - Product adhesion issue [Unknown]
  - Product quality issue [Unknown]
  - Wrong technique in drug usage process [Unknown]
  - Inappropriate schedule of drug administration [Unknown]
  - Wrong technique in drug usage process [Unknown]
